FAERS Safety Report 14766508 (Version 1)
Quarter: 2018Q2

REPORT INFORMATION
  Report Type: Report from Study
  Country: US (occurrence: US)
  Receive Date: 20180416
  Receipt Date: 20180416
  Transmission Date: 20180711
  Serious: No
  Sender: FDA-Public Use
  Company Number: PHEH2018US014303

PATIENT
  Sex: Female

DRUGS (1)
  1. COSENTYX [Suspect]
     Active Substance: SECUKINUMAB
     Indication: PRODUCT USED FOR UNKNOWN INDICATION
     Route: 065

REACTIONS (6)
  - Psoriatic arthropathy [Unknown]
  - Oropharyngeal pain [Unknown]
  - Feeling abnormal [Unknown]
  - Chest pain [Unknown]
  - Gastric disorder [Unknown]
  - Drug hypersensitivity [Unknown]
